FAERS Safety Report 25449754 (Version 1)
Quarter: 2025Q2

REPORT INFORMATION
  Report Type: Report from Study
  Country: US (occurrence: US)
  Receive Date: 20250618
  Receipt Date: 20250618
  Transmission Date: 20250716
  Serious: Yes (Other)
  Sender: PACIRA
  Company Number: US-ORG100016242-2025000221

PATIENT
  Age: 85 Year
  Sex: Male

DRUGS (1)
  1. ZILRETTA [Suspect]
     Active Substance: TRIAMCINOLONE ACETONIDE
     Indication: Osteoarthritis
     Route: 014

REACTIONS (2)
  - Cerebrovascular accident [Unknown]
  - Patient dissatisfaction with treatment [Unknown]
